FAERS Safety Report 9812735 (Version 1)
Quarter: 2014Q1

REPORT INFORMATION
  Report Type: Spontaneous
  Country: US (occurrence: US)
  Receive Date: 20140113
  Receipt Date: 20140113
  Transmission Date: 20141002
  Serious: Yes (Death, Hospitalization)
  Sender: FDA-Public Use
  Company Number: US-BAYER-2014-004753

PATIENT
  Age: 41 Year
  Sex: Female

DRUGS (12)
  1. DIPHENHYDRAMINE HYDROCHLORIDE [Suspect]
     Route: 048
  2. DIPHENHYDRAMINE HYDROCHLORIDE [Suspect]
     Route: 045
  3. DILTIAZEM [Suspect]
     Route: 048
  4. DILTIAZEM [Suspect]
     Route: 045
  5. CLONAZEPAM [Suspect]
     Route: 048
  6. CLONAZEPAM [Suspect]
     Route: 045
  7. COCAINE [Suspect]
     Route: 048
  8. COCAINE [Suspect]
     Route: 045
  9. HYDROCHLOROTHIAZIDE [Suspect]
     Route: 048
  10. HYDROCHLOROTHIAZIDE [Suspect]
     Route: 045
  11. ACETAMINOPHEN W/HYDROCODONE [Suspect]
     Route: 048
  12. ACETAMINOPHEN W/HYDROCODONE [Suspect]
     Route: 045

REACTIONS (1)
  - Toxicity to various agents [Fatal]
